FAERS Safety Report 6657076-0 (Version None)
Quarter: 2010Q1

REPORT INFORMATION
  Report Type: 
  Country: None (occurrence: None)
  Receive Date: 20100330
  Receipt Date: 20100323
  Transmission Date: 20100710
  Serious: Yes (Other)
  Sender: FDA-Public Use
  Company Number: US-KINGPHARMUSA00001-K201000341

PATIENT
  Sex: Male
  Weight: 77.098 kg

DRUGS (6)
  1. EMBEDA [Suspect]
     Indication: PAIN
     Dosage: 1800 MG, QD
     Route: 048
     Dates: start: 20100301
  2. SOMA [Concomitant]
     Indication: HYPOTONIA
     Dosage: 350 MG, QID
     Route: 048
  3. LASIX [Concomitant]
     Indication: HEPATIC CIRRHOSIS
     Dosage: 40 MG, QD
     Route: 048
  4. ALBUTEROL [Concomitant]
     Indication: ASTHMA
     Dosage: UNK
     Route: 048
  5. OXYCODONE [Concomitant]
     Indication: PAIN
     Dosage: 90 MG, BID, PRN
     Route: 048
  6. OXYGEN [Concomitant]
     Indication: ASTHMA
     Dosage: 2.5 L, PRN

REACTIONS (5)
  - ABNORMAL DREAMS [None]
  - DYSKINESIA [None]
  - DYSPNOEA [None]
  - HEART RATE INCREASED [None]
  - MUSCLE TWITCHING [None]
